FAERS Safety Report 25461639 (Version 1)
Quarter: 2025Q2

REPORT INFORMATION
  Report Type: Spontaneous
  Country: US (occurrence: None)
  Receive Date: 20250618
  Receipt Date: 20250618
  Transmission Date: 20250716
  Serious: Yes (Life-Threatening, Disabling, Other)
  Sender: FDA-CTU
  Company Number: None

PATIENT
  Age: 83 Year
  Sex: Male
  Weight: 83.01 kg

DRUGS (17)
  1. LEXISCAN [Suspect]
     Active Substance: REGADENOSON
  2. VITAMINS [Concomitant]
     Active Substance: VITAMINS
  3. MINERALS\VITAMINS [Concomitant]
     Active Substance: MINERALS\VITAMINS
  4. ISOSORBIDE [Concomitant]
     Active Substance: ISOSORBIDE
  5. LOSARTAN [Concomitant]
     Active Substance: LOSARTAN
  6. ASPIRIN (LOW DOSE) [Concomitant]
  7. CARVEDILOL [Concomitant]
     Active Substance: CARVEDILOL
  8. NITROGLYCERIN [Concomitant]
     Active Substance: NITROGLYCERIN
  9. EZETIMIBE [Concomitant]
     Active Substance: EZETIMIBE
  10. MIRALAX [Concomitant]
     Active Substance: POLYETHYLENE GLYCOL 3350
  11. CLOPEDIGREL [Concomitant]
  12. AMLODIPINE [Concomitant]
     Active Substance: AMLODIPINE BESYLATE
  13. TESTOSTERONE [Concomitant]
     Active Substance: TESTOSTERONE
  14. AZELASTINE [Concomitant]
     Active Substance: AZELASTINE
  15. HYDROXYZINE [Concomitant]
     Active Substance: HYDROXYZINE HYDROCHLORIDE
  16. PRALUENT [Concomitant]
     Active Substance: ALIROCUMAB
  17. HERBALS [Concomitant]
     Active Substance: HERBALS

REACTIONS (1)
  - Myocardial infarction [None]

NARRATIVE: CASE EVENT DATE: 20250605
